FAERS Safety Report 16074222 (Version 2)
Quarter: 2019Q2

REPORT INFORMATION
  Report Type: Report from Study
  Country: US (occurrence: US)
  Receive Date: 20190314
  Receipt Date: 20190419
  Transmission Date: 20190711
  Serious: Yes (Other)
  Sender: FDA-Public Use
  Company Number: US-GILEAD-2019-0392375

PATIENT
  Age: 71 Year
  Sex: Female

DRUGS (13)
  1. WARFARIN [Concomitant]
     Active Substance: WARFARIN
     Dosage: 5MG BY MOUTH DAILY X 4 DAYS PER WEEK AND 7.5MG BY MOUTH DAILY X 3 DAYS PER WEEK, (CURRENT DOSING.)
  2. TYLENOL 8HR [Concomitant]
     Active Substance: ACETAMINOPHEN
     Dosage: NOT PROVIDED, 8 HOUR DOSING BY MOUTH AS NEEDED.
  3. DOXORUBICIN [Concomitant]
     Active Substance: DOXORUBICIN
  4. IDELALISIB [Suspect]
     Active Substance: IDELALISIB
     Indication: NON-HODGKIN^S LYMPHOMA
     Dosage: 150 MG, BID
     Route: 048
     Dates: start: 20190114
  5. RITUXAN [Concomitant]
     Active Substance: RITUXIMAB
     Dosage: NOT PROVIDED, INTRAVENOUS INFUSIONS.
  6. PRAVASTATIN. [Interacting]
     Active Substance: PRAVASTATIN
     Indication: ATRIAL FIBRILLATION
     Route: 065
  7. VINCRISTINE [Concomitant]
     Active Substance: VINCRISTINE
  8. ZZZQUIL NIGHTTIME SLEEP-AID [Concomitant]
     Active Substance: DIPHENHYDRAMINE HYDROCHLORIDE
     Dosage: UNKNOWN
     Dates: start: 20190218, end: 20190218
  9. CYCLOPHOSPHAMIDE. [Concomitant]
     Active Substance: CYCLOPHOSPHAMIDE
     Dosage: NOT PROVIDED, INTRAVENOUS INFUSIONS.
  10. PRAVASTATIN. [Interacting]
     Active Substance: PRAVASTATIN
     Indication: CARDIAC DISORDER
  11. VITAMIN C [CALCIUM ASCORBATE] [Concomitant]
     Active Substance: CALCIUM ASCORBATE
     Dosage: NOT PROVIDED, BY MOUTH.
  12. ZANTAC [Concomitant]
     Active Substance: RANITIDINE HYDROCHLORIDE
     Dosage: NOT PROVIDED, ONE TABLET BY MOUTH ABOUT ONCE EVERY 10 DAYS AS NEEDED.
     Dates: start: 20190114
  13. PREDNISONE. [Concomitant]
     Active Substance: PREDNISONE

REACTIONS (12)
  - Poor quality sleep [Not Recovered/Not Resolved]
  - Depression [Not Recovered/Not Resolved]
  - Drug interaction [Recovered/Resolved]
  - Hypogeusia [Not Recovered/Not Resolved]
  - Fatigue [Recovered/Resolved]
  - Anaemia [Not Recovered/Not Resolved]
  - Decreased appetite [Not Recovered/Not Resolved]
  - Muscle fatigue [Recovered/Resolved]
  - Prothrombin level abnormal [Not Recovered/Not Resolved]
  - Vaginal discharge [Recovered/Resolved]
  - Gastrooesophageal reflux disease [Not Recovered/Not Resolved]
  - Tumour ulceration [Recovering/Resolving]

NARRATIVE: CASE EVENT DATE: 20190114
